FAERS Safety Report 8854317 (Version 1)
Quarter: 2012Q4

REPORT INFORMATION
  Report Type: Spontaneous
  Country: US (occurrence: None)
  Receive Date: 20121019
  Receipt Date: 20121019
  Transmission Date: 20130627
  Serious: Yes (Other)
  Sender: FDA-Public Use
  Company Number: None

PATIENT
  Age: 63 Year
  Sex: Female
  Weight: 70.76 kg

DRUGS (3)
  1. CILOSTAZOL [Suspect]
     Indication: ANKLE SWELLING
     Dates: start: 20120402, end: 20121018
  2. CILOSTAZOL [Suspect]
     Indication: SWELLING OF LEGS
     Dates: start: 20120402, end: 20121018
  3. CILOSTAZOL [Suspect]
     Indication: VEIN DISCOLORATION
     Dates: start: 20120402, end: 20121018

REACTIONS (1)
  - Heart rate irregular [None]
